FAERS Safety Report 5693724-X (Version None)
Quarter: 2008Q2

REPORT INFORMATION
  Report Type: 
  Country: None (occurrence: None)
  Receive Date: 20080403
  Receipt Date: 20080328
  Transmission Date: 20081010
  Serious: Yes (Other)
  Sender: FDA-Public Use
  Company Number: JP-ASTRAZENECA-2008AP02259

PATIENT
  Sex: Male

DRUGS (1)
  1. IRESSA [Suspect]
     Route: 048

REACTIONS (1)
  - ENCEPHALOPATHY [None]
